FAERS Safety Report 6297579-4 (Version None)
Quarter: 2009Q3

REPORT INFORMATION
  Report Type: 
  Country: None (occurrence: None)
  Receive Date: 20090805
  Receipt Date: 20090731
  Transmission Date: 20100115
  Serious: Yes (Other)
  Sender: FDA-Public Use
  Company Number: CH-BRISTOL-MYERS SQUIBB COMPANY-14723480

PATIENT
  Age: 39 Year
  Sex: Female

DRUGS (3)
  1. TRITTICO [Suspect]
     Indication: DEPRESSION
     Dosage: FORM: 100MG TABS
     Route: 048
     Dates: start: 20050301
  2. TRITTICO [Suspect]
     Indication: SLEEP DISORDER
     Dosage: FORM: 100MG TABS
     Route: 048
     Dates: start: 20050301
  3. EFFEXOR [Suspect]
     Indication: DEPRESSION
     Dosage: TABS
     Dates: start: 20051101

REACTIONS (2)
  - DRY MOUTH [None]
  - PERIODONTAL DISEASE [None]
